FAERS Safety Report 20950865 (Version 2)
Quarter: 2022Q2

REPORT INFORMATION
  Report Type: Report from Study
  Country: US (occurrence: US)
  Receive Date: 20220613
  Receipt Date: 20220617
  Transmission Date: 20220721
  Serious: Yes (Hospitalization)
  Sender: FDA-Public Use
  Company Number: US-GLAXOSMITHKLINE-US2022GSK090788

PATIENT

DRUGS (13)
  1. PACLITAXEL [Suspect]
     Active Substance: PACLITAXEL
     Indication: Breast cancer
     Dosage: 205 MG/M2+15 MG/M2, Z (WEEKLY D1-D3)
     Route: 048
     Dates: start: 20211214, end: 20220303
  2. DOSTARLIMAB [Suspect]
     Active Substance: DOSTARLIMAB
     Indication: Breast cancer
     Dosage: 500 MG, Z (3 TIMES A WEEK)
     Route: 042
     Dates: start: 20211214, end: 20211214
  3. DOSTARLIMAB [Suspect]
     Active Substance: DOSTARLIMAB
     Dosage: 500 MG, Z
     Route: 042
     Dates: start: 20220214, end: 20220214
  4. DOXORUBICIN [Suspect]
     Active Substance: DOXORUBICIN
     Indication: Breast cancer
     Dosage: 60 MG/M2, Z (Q3WEEKS)
     Route: 042
     Dates: start: 20220322, end: 20220322
  5. DOXORUBICIN [Suspect]
     Active Substance: DOXORUBICIN
     Dosage: 60 MG/M2, Z (Q3WEEKS)
     Route: 042
     Dates: start: 20220524, end: 20220524
  6. CYCLOPHOSPHAMIDE [Suspect]
     Active Substance: CYCLOPHOSPHAMIDE
     Indication: Breast cancer
     Dosage: 600 MG/M2, Z (3 TIMES A WEEK)
     Route: 042
     Dates: start: 20220322, end: 20220322
  7. CYCLOPHOSPHAMIDE [Suspect]
     Active Substance: CYCLOPHOSPHAMIDE
     Dosage: 600 MG/M2, Z(3 TIMES A WEEK)
     Route: 042
     Dates: start: 20220524, end: 20220524
  8. PEPCID [Concomitant]
     Active Substance: FAMOTIDINE
     Indication: Abdominal discomfort
     Dosage: 20 MG, QD, PRN
     Route: 048
     Dates: start: 20211227
  9. PEPCID [Concomitant]
     Active Substance: FAMOTIDINE
     Indication: Hyperchlorhydria
  10. DEXAMETHASONE [Concomitant]
     Active Substance: DEXAMETHASONE
     Indication: Product used for unknown indication
     Dosage: 5 ML, BID, 0.5 MG/ 5ML
     Route: 048
  11. LIDOCAINE [Concomitant]
     Active Substance: LIDOCAINE
     Dosage: 5 ML, BID
     Route: 061
  12. ZOFRAN [Concomitant]
     Active Substance: ONDANSETRON HYDROCHLORIDE
     Indication: Prophylaxis of nausea and vomiting
     Dosage: 1 DF, BID, PRN
     Route: 048
  13. ENCEQUIDAR MESYLATE MONOHYDRATE [Suspect]
     Active Substance: ENCEQUIDAR MESYLATE MONOHYDRATE

REACTIONS (1)
  - Rectal haemorrhage [Recovered/Resolved]

NARRATIVE: CASE EVENT DATE: 20220603
